FAERS Safety Report 10188154 (Version 2)
Quarter: 2014Q2

REPORT INFORMATION
  Report Type: Spontaneous
  Country: US (occurrence: US)
  Receive Date: 20140522
  Receipt Date: 20140626
  Transmission Date: 20141212
  Serious: No
  Sender: FDA-Public Use
  Company Number: US-PFIZER INC-2014140183

PATIENT
  Age: 47 Year
  Sex: Female
  Weight: 65.8 kg

DRUGS (2)
  1. LYRICA [Suspect]
     Indication: SCIATICA
     Dosage: 100 MG , 3X/DAY
  2. HYDROCODONE [Concomitant]
     Dosage: 7.5 MG, 3X/DAY
     Dates: start: 2013

REACTIONS (1)
  - Drug ineffective [Unknown]
